FAERS Safety Report 7650000-3 (Version None)
Quarter: 2011Q3

REPORT INFORMATION
  Report Type: 
  Country: None (occurrence: None)
  Receive Date: 20110802
  Receipt Date: 20110728
  Transmission Date: 20111222
  Serious: Yes (Hospitalization)
  Sender: FDA-Public Use
  Company Number: KR-BRISTOL-MYERS SQUIBB COMPANY-15932379

PATIENT
  Age: 63 Year

DRUGS (2)
  1. PACLITAXEL [Suspect]
     Indication: OESOPHAGEAL SQUAMOUS CELL CARCINOMA RECURRENT
     Route: 042
     Dates: start: 20110512
  2. CAPECITABINE [Suspect]
     Indication: OESOPHAGEAL SQUAMOUS CELL CARCINOMA RECURRENT
     Dosage: TABS
     Route: 048
     Dates: start: 20110512

REACTIONS (1)
  - DYSPHAGIA [None]
